FAERS Safety Report 22045927 (Version 1)
Quarter: 2023Q1

REPORT INFORMATION
  Report Type: Spontaneous
  Country: US (occurrence: US)
  Receive Date: 20230228
  Receipt Date: 20230228
  Transmission Date: 20230418
  Serious: No
  Sender: FDA-Public Use
  Company Number: US-BAYER-2023A017624

PATIENT
  Age: 40 Year
  Sex: Male

DRUGS (6)
  1. SORAFENIB [Suspect]
     Active Substance: SORAFENIB
     Indication: Erdheim-Chester disease
     Dosage: UNK
  2. CLADRIBINE [Concomitant]
     Active Substance: CLADRIBINE
  3. HYDROXYUREA [Concomitant]
     Active Substance: HYDROXYUREA
  4. METHOTREXATE [Concomitant]
     Active Substance: METHOTREXATE
  5. TOCILIZUMAB [Concomitant]
     Active Substance: TOCILIZUMAB
  6. COBIMETINIB [Concomitant]
     Active Substance: COBIMETINIB

REACTIONS (2)
  - Off label use [None]
  - Therapeutic response unexpected [None]
